FAERS Safety Report 10425233 (Version 1)
Quarter: 2014Q3

REPORT INFORMATION
  Report Type: Spontaneous
  Country: CN (occurrence: CN)
  Receive Date: 20140902
  Receipt Date: 20140902
  Transmission Date: 20150326
  Serious: Yes (Other)
  Sender: FDA-Public Use
  Company Number: CN-PFIZER INC-2014236240

PATIENT
  Age: 72 Year
  Sex: Male

DRUGS (4)
  1. VANCOCIN [Suspect]
     Active Substance: VANCOMYCIN HYDROCHLORIDE
     Indication: LUNG INFECTION
     Dosage: 1 G, 3X/DAY
     Route: 041
     Dates: start: 20140123, end: 20140127
  2. VANCOCIN [Suspect]
     Active Substance: VANCOMYCIN HYDROCHLORIDE
     Dosage: 0.5 G, 3X/DAY
     Route: 041
     Dates: start: 20140127, end: 20140128
  3. METHYLPREDNISOLONE [Suspect]
     Active Substance: METHYLPREDNISOLONE
     Indication: CHRONIC OBSTRUCTIVE PULMONARY DISEASE
     Dosage: UNK MG, 1X/DAY
     Dates: start: 201401
  4. FUROSEMIDE. [Concomitant]
     Active Substance: FUROSEMIDE
     Indication: POLYURIA
     Dosage: 60 MG, 1X/DAY
     Route: 042
     Dates: start: 20140123, end: 20140123

REACTIONS (3)
  - Blood urea increased [Not Recovered/Not Resolved]
  - Renal injury [Unknown]
  - Blood creatinine increased [Not Recovered/Not Resolved]

NARRATIVE: CASE EVENT DATE: 201401
